FAERS Safety Report 18556082 (Version 2)
Quarter: 2021Q1

REPORT INFORMATION
  Report Type: Spontaneous
  Country: JP (occurrence: JP)
  Receive Date: 20201127
  Receipt Date: 20210101
  Transmission Date: 20210419
  Serious: Yes (Other)
  Sender: FDA-Public Use
  Company Number: JP-BAXTER-2020BAX024100

PATIENT
  Age: 52 Year
  Sex: Female

DRUGS (1)
  1. ENDOXAN [Suspect]
     Active Substance: CYCLOPHOSPHAMIDE
     Indication: CERVIX CARCINOMA
     Route: 048

REACTIONS (1)
  - Acute promyelocytic leukaemia [Recovering/Resolving]
